FAERS Safety Report 18106899 (Version 2)
Quarter: 2021Q4

REPORT INFORMATION
  Report Type: Report from Study
  Country: EG (occurrence: EG)
  Receive Date: 20200804
  Receipt Date: 20211008
  Transmission Date: 20220303
  Serious: Yes (Hospitalization, Other)
  Sender: FDA-Public Use
  Company Number: NVSC2020EG213059

PATIENT
  Sex: Female

DRUGS (2)
  1. GLIVEC [Suspect]
     Active Substance: IMATINIB MESYLATE
     Indication: Chronic myeloid leukaemia
     Dosage: 1 DF, QD (START DATE OF DRUG 8-9 YEARS AGO)
     Route: 065
  2. EZAPRIL [Concomitant]
     Indication: Hypertension
     Dosage: 10 MG, QD (10 YEARS AGO TILL NOW)
     Route: 065

REACTIONS (5)
  - Polymerase chain reaction positive [Not Recovered/Not Resolved]
  - Nausea [Not Recovered/Not Resolved]
  - Abdominal pain upper [Recovering/Resolving]
  - Product dose omission issue [Not Recovered/Not Resolved]
  - Vomiting [Recovering/Resolving]
